FAERS Safety Report 6144099-3 (Version None)
Quarter: 2009Q2

REPORT INFORMATION
  Report Type: 
  Country: None (occurrence: None)
  Receive Date: 20090406
  Receipt Date: 20090401
  Transmission Date: 20091009
  Serious: Yes (Other)
  Sender: FDA-Public Use
  Company Number: US-BAYER-200911687NA

PATIENT
  Age: 24 Year
  Sex: Female
  Weight: 100 kg

DRUGS (6)
  1. YASMIN [Suspect]
     Indication: CONTRACEPTION
     Route: 048
     Dates: start: 20060101
  2. YASMIN [Suspect]
     Route: 048
     Dates: start: 20070101
  3. RISPERDAL [Concomitant]
  4. METHACARBOMAL (NOS) [Concomitant]
  5. CYCLOBENZAPRINE [Concomitant]
  6. IBUPROFEN [Concomitant]

REACTIONS (1)
  - ECTOPIC PREGNANCY [None]
